FAERS Safety Report 10197794 (Version 1)
Quarter: 2014Q2

REPORT INFORMATION
  Report Type: Spontaneous
  Country: GB (occurrence: GB)
  Receive Date: 20140527
  Receipt Date: 20140527
  Transmission Date: 20141212
  Serious: Yes (Other)
  Sender: FDA-Public Use
  Company Number: GB-BRISTOL-MYERS SQUIBB COMPANY-20789939

PATIENT
  Sex: Male
  Weight: 125.8 kg

DRUGS (5)
  1. METFORMIN HCL [Suspect]
  2. ASPIRIN [Concomitant]
  3. HUMULIN [Concomitant]
  4. NICORANDIL [Concomitant]
  5. AMLODIPINE [Concomitant]

REACTIONS (3)
  - Poor peripheral circulation [Unknown]
  - Pain in extremity [Unknown]
  - Blister [Recovered/Resolved]
